FAERS Safety Report 11888621 (Version 1)
Quarter: 2016Q1

REPORT INFORMATION
  Report Type: Spontaneous
  Country: US (occurrence: US)
  Receive Date: 20160105
  Receipt Date: 20160105
  Transmission Date: 20160526
  Serious: Yes (Hospitalization, Other)
  Sender: FDA-Public Use
  Company Number: US-PURDUE-USA-2015-0128187

PATIENT
  Sex: Male

DRUGS (1)
  1. OXYCODONE HCL IR CAPSULES [Suspect]
     Active Substance: OXYCODONE HYDROCHLORIDE
     Indication: PAIN
     Dosage: 15 MG, QID
     Route: 048
     Dates: start: 201306

REACTIONS (4)
  - Accident at work [Unknown]
  - Pancreatitis [Unknown]
  - Joint injury [Unknown]
  - Back injury [Unknown]
